FAERS Safety Report 7587946-0 (Version None)
Quarter: 2011Q3

REPORT INFORMATION
  Report Type: 
  Country: None (occurrence: None)
  Receive Date: 20110705
  Receipt Date: 20110629
  Transmission Date: 20111222
  Serious: No
  Sender: FDA-Public Use
  Company Number: US-PFIZER INC-2011146769

PATIENT
  Sex: Female

DRUGS (3)
  1. CALAN [Suspect]
     Dosage: 240 MG, UNK
  2. CALAN [Suspect]
     Dosage: 120 MG, UNK
  3. CALAN [Suspect]
     Dosage: 180 MG, UNK

REACTIONS (1)
  - SOMNOLENCE [None]
